FAERS Safety Report 5884282-5 (Version None)
Quarter: 2008Q3

REPORT INFORMATION
  Report Type: 
  Country: None (occurrence: None)
  Receive Date: 20080915
  Receipt Date: 20080904
  Transmission Date: 20090109
  Serious: Yes (Death)
  Sender: FDA-Public Use
  Company Number: CN-ASTRAZENECA-2007AP01507

PATIENT
  Age: 300 Month
  Sex: Female
  Weight: 46 kg

DRUGS (4)
  1. NEXIUM [Suspect]
     Indication: GASTRIC ULCER
     Route: 048
     Dates: start: 20070125, end: 20070225
  2. NEXIUM [Suspect]
     Route: 048
     Dates: start: 20070225, end: 20070325
  3. BISMUTH POTASSIUM CITRATE CAPSULES [Concomitant]
     Route: 048
  4. AMOXICILLIN [Concomitant]
     Route: 048

REACTIONS (4)
  - GASTRIC ADENOMA [None]
  - GASTROINTESTINAL CARCINOMA IN SITU [None]
  - HEPATIC NEOPLASM MALIGNANT [None]
  - PANCREATIC CARCINOMA [None]
